FAERS Safety Report 11483960 (Version 1)
Quarter: 2015Q3

REPORT INFORMATION
  Report Type: Spontaneous
  Country: US (occurrence: None)
  Receive Date: 20150909
  Receipt Date: 20150909
  Transmission Date: 20151125
  Serious: Yes (Other)
  Sender: FDA-Public Use
  Company Number: None

PATIENT
  Sex: Female

DRUGS (1)
  1. RISPERDAL [Suspect]
     Active Substance: RISPERIDONE
     Indication: BIPOLAR DISORDER
     Dosage: ONCE EVERY 2 WEEKS
     Route: 030
     Dates: start: 20140904, end: 201509

REACTIONS (2)
  - Blood glucose abnormal [None]
  - Weight increased [None]
